FAERS Safety Report 6268763-0 (Version None)
Quarter: 2009Q3

REPORT INFORMATION
  Report Type: 
  Country: None (occurrence: None)
  Receive Date: 20090713
  Receipt Date: 20090713
  Transmission Date: 20100115
  Serious: Yes (Hospitalization)
  Sender: FDA-Public Use
  Company Number: None

PATIENT
  Age: 66 Year
  Sex: Male
  Weight: 64.8 kg

DRUGS (2)
  1. SUTITINIB 25 MG PFIZER [Suspect]
     Indication: NON-SMALL CELL LUNG CANCER
     Dosage: 25 MG QD PO
     Route: 048
     Dates: start: 20090429, end: 20090527
  2. RAPAMYCIN 2 MG WYETH [Suspect]
     Indication: NON-SMALL CELL LUNG CANCER
     Dosage: RAPAMYCIN QD PO
     Route: 048

REACTIONS (1)
  - FEBRILE NEUTROPENIA [None]
